FAERS Safety Report 14360988 (Version 2)
Quarter: 2018Q1

REPORT INFORMATION
  Report Type: Spontaneous
  Country: JP (occurrence: JP)
  Receive Date: 20180107
  Receipt Date: 20180131
  Transmission Date: 20180509
  Serious: Yes (Hospitalization, Other)
  Sender: FDA-Public Use
  Company Number: JP-SHIRE-JP201713984

PATIENT

DRUGS (6)
  1. PENTASA [Suspect]
     Active Substance: MESALAMINE
     Dosage: 1 G, 1X/DAY:QD
     Route: 054
     Dates: start: 20170317, end: 20170510
  2. PENTASA [Suspect]
     Active Substance: MESALAMINE
     Indication: COLITIS ULCERATIVE
     Dosage: 1000 MG, 2X/DAY:BID
     Route: 048
     Dates: start: 20151027, end: 20170511
  3. PENTASA [Suspect]
     Active Substance: MESALAMINE
     Dosage: 4000 MG, 1X/DAY:QD
     Dates: start: 20170317
  4. MIYA-BM [Concomitant]
     Active Substance: CLOSTRIDIUM BUTYRICUM SPORES STRAIN M-55
     Indication: GASTROINTESTINAL DISORDER
  5. LIALDA [Suspect]
     Active Substance: MESALAMINE
     Indication: COLITIS ULCERATIVE
     Dosage: 4800 MG, 1X/DAY:QD
     Route: 048
     Dates: start: 20170427, end: 20170510
  6. ALLEGRA [Suspect]
     Active Substance: FEXOFENADINE HYDROCHLORIDE
     Indication: RHINITIS ALLERGIC
     Dosage: 60 MG, 2X/DAY:BID
     Route: 048
     Dates: start: 20170316, end: 20170510

REACTIONS (1)
  - Pancreatitis acute [Recovered/Resolved]

NARRATIVE: CASE EVENT DATE: 20170511
